FAERS Safety Report 17193450 (Version 1)
Quarter: 2019Q4

REPORT INFORMATION
  Report Type: Spontaneous
  Country: FI (occurrence: FI)
  Receive Date: 20191223
  Receipt Date: 20191223
  Transmission Date: 20200122
  Serious: Yes (Other)
  Sender: FDA-Public Use
  Company Number: FI-JNJFOC-20191221915

PATIENT
  Sex: Female

DRUGS (6)
  1. PANADOL [Concomitant]
     Active Substance: ACETAMINOPHEN
     Route: 065
  2. BURANA [Concomitant]
     Active Substance: IBUPROFEN
     Indication: HEADACHE
     Route: 065
  3. RISPERDAL [Suspect]
     Active Substance: RISPERIDONE
     Route: 065
     Dates: start: 20191128
  4. VENLAFAXINE [Concomitant]
     Active Substance: VENLAFAXINE HYDROCHLORIDE
     Route: 065
  5. RISPERDAL [Suspect]
     Active Substance: RISPERIDONE
     Indication: MAJOR DEPRESSION
     Route: 065
     Dates: start: 20191125
  6. KETIPINOR [Concomitant]
     Active Substance: QUETIAPINE FUMARATE
     Route: 065

REACTIONS (4)
  - Facial paralysis [Recovering/Resolving]
  - Eyelid ptosis [Recovered/Resolved]
  - Dyspnoea [Recovering/Resolving]
  - Pruritus [Recovering/Resolving]
